FAERS Safety Report 9044070 (Version 1)
Quarter: 2013Q1

REPORT INFORMATION
  Report Type: Spontaneous
  Country: DE (occurrence: DE)
  Receive Date: 20130130
  Receipt Date: 20130130
  Transmission Date: 20140127
  Serious: Yes (Other)
  Sender: FDA-Public Use
  Company Number: DE-JNJFOC-20130113494

PATIENT
  Sex: Male

DRUGS (2)
  1. REGAINE [Suspect]
     Route: 061
  2. REGAINE [Suspect]
     Indication: PRODUCT USED FOR UNKNOWN INDICATION
     Route: 061

REACTIONS (2)
  - Cardiac flutter [Recovered/Resolved]
  - Headache [Recovered/Resolved]
